FAERS Safety Report 6251720-8 (Version None)
Quarter: 2009Q2

REPORT INFORMATION
  Report Type: 
  Country: None (occurrence: None)
  Receive Date: 20090630
  Receipt Date: 20090617
  Transmission Date: 20091009
  Serious: Yes (Hospitalization)
  Sender: FDA-Public Use
  Company Number: FR-PFIZER INC-2009227990

PATIENT
  Age: 3 Day

DRUGS (7)
  1. XANAX [Suspect]
     Dosage: 0.25 MG, 4X/DAY
     Route: 064
  2. PAROXETINE [Suspect]
     Dosage: UNK
     Route: 064
  3. CLONAZEPAM [Suspect]
     Dosage: 20 GTT, 1X/DAY
     Route: 064
  4. SERESTA [Suspect]
     Dosage: 50 MG, 2X/DAY
     Route: 064
  5. AERIUS [Suspect]
     Dosage: UNK
     Route: 064
  6. TEGRETOL [Suspect]
     Dosage: 400 MG, 2X/DAY
     Route: 064
  7. MYOLASTAN [Suspect]
     Dosage: UNK
     Route: 064

REACTIONS (2)
  - DRUG EXPOSURE DURING PREGNANCY [None]
  - DRUG WITHDRAWAL SYNDROME NEONATAL [None]
